FAERS Safety Report 4712562-5 (Version None)
Quarter: 2005Q3

REPORT INFORMATION
  Report Type: 
  Country: None (occurrence: None)
  Receive Date: 20050711
  Receipt Date: 20050701
  Transmission Date: 20060218
  Serious: Yes (Hospitalization)
  Sender: FDA-Public Use
  Company Number: US015404

PATIENT
  Age: 45 Year
  Sex: Female

DRUGS (1)
  1. GABITRIL [Suspect]
     Dosage: 6 MG QD ORAL
     Route: 048

REACTIONS (4)
  - ABNORMAL BEHAVIOUR [None]
  - AMNESIA [None]
  - COGNITIVE DISORDER [None]
  - LOSS OF CONSCIOUSNESS [None]
